FAERS Safety Report 6620728-2 (Version None)
Quarter: 2010Q1

REPORT INFORMATION
  Report Type: 
  Country: None (occurrence: None)
  Receive Date: 20100309
  Receipt Date: 20100302
  Transmission Date: 20100710
  Serious: Yes (Other)
  Sender: FDA-Public Use
  Company Number: US-RB-026569-09

PATIENT
  Age: 24 Year
  Sex: Female

DRUGS (1)
  1. SUBOXONE [Suspect]
     Dosage: 4 MG EVERY 4-6 HOURS
     Route: 060
     Dates: start: 20091101

REACTIONS (10)
  - ABORTION SPONTANEOUS [None]
  - ANXIETY [None]
  - CONSTIPATION [None]
  - DRUG EXPOSURE DURING PREGNANCY [None]
  - HEADACHE [None]
  - INSOMNIA [None]
  - NERVOUSNESS [None]
  - OROPHARYNGEAL PAIN [None]
  - SOMNOLENCE [None]
  - VOMITING [None]
